FAERS Safety Report 19823045 (Version 4)
Quarter: 2021Q4

REPORT INFORMATION
  Report Type: Spontaneous
  Country: US (occurrence: US)
  Receive Date: 20210913
  Receipt Date: 20211216
  Transmission Date: 20220303
  Serious: Yes (Death)
  Sender: FDA-Public Use
  Company Number: US-JNJFOC-20210906693

PATIENT
  Age: 48 Year
  Sex: Male
  Weight: 90.800 kg

DRUGS (7)
  1. SPRAVATO [Suspect]
     Active Substance: ESKETAMINE
     Indication: Product used for unknown indication
  2. SPRAVATO [Suspect]
     Active Substance: ESKETAMINE
  3. CRESTOR [Concomitant]
     Active Substance: ROSUVASTATIN CALCIUM
     Route: 048
  4. PROPRANOLOL [Concomitant]
     Active Substance: PROPRANOLOL HYDROCHLORIDE
     Indication: Anxiety
     Route: 048
  5. BUSPIRONE [Concomitant]
     Active Substance: BUSPIRONE HYDROCHLORIDE
     Indication: Anxiety
     Route: 048
  6. VIIBRYD [Concomitant]
     Active Substance: VILAZODONE HYDROCHLORIDE
  7. REXULTI [Concomitant]
     Active Substance: BREXPIPRAZOLE

REACTIONS (2)
  - Completed suicide [Fatal]
  - Drug ineffective [Unknown]

NARRATIVE: CASE EVENT DATE: 20210820
